FAERS Safety Report 6171913-8 (Version None)
Quarter: 2009Q2

REPORT INFORMATION
  Report Type: 
  Country: None (occurrence: None)
  Receive Date: 20090429
  Receipt Date: 20090422
  Transmission Date: 20091009
  Serious: Yes (Hospitalization)
  Sender: FDA-Public Use
  Company Number: NL-MERCK-0904NLD00027

PATIENT
  Age: 12 Year
  Sex: Male

DRUGS (1)
  1. MAXALT [Suspect]
     Indication: MIGRAINE
     Route: 048
     Dates: start: 20090402, end: 20090402

REACTIONS (3)
  - HEADACHE [None]
  - NECK PAIN [None]
  - OFF LABEL USE [None]
